FAERS Safety Report 6336124-1 (Version None)
Quarter: 2009Q3

REPORT INFORMATION
  Report Type: 
  Country: None (occurrence: None)
  Receive Date: 20090828
  Receipt Date: 20090818
  Transmission Date: 20100115
  Serious: Yes (Other)
  Sender: FDA-Public Use
  Company Number: ADR14512009

PATIENT

DRUGS (4)
  1. CITALOPRAM HYDROBROMIDE [Suspect]
     Indication: ANXIETY
     Dosage: 40MG
     Route: 064
     Dates: start: 20070124, end: 20080423
  2. CITALOPRAM HYDROBROMIDE [Suspect]
     Indication: DEPRESSION
     Dosage: 40MG
     Route: 064
     Dates: start: 20070124, end: 20080423
  3. PROPRANOLOL [Concomitant]
  4. DICLOFENAC SODIUM [Concomitant]

REACTIONS (2)
  - ANENCEPHALY [None]
  - MATERNAL DRUGS AFFECTING FOETUS [None]
